FAERS Safety Report 4572615-1 (Version None)
Quarter: 2005Q1

REPORT INFORMATION
  Report Type: 
  Country: None (occurrence: None)
  Receive Date: 20050208
  Receipt Date: 20040920
  Transmission Date: 20050727
  Serious: No
  Sender: FDA-Public Use
  Company Number: US-GLAXOSMITHKLINE-A0526426A

PATIENT
  Age: 8 Year
  Sex: Female
  Weight: 23.6 kg

DRUGS (5)
  1. PAXIL [Suspect]
     Indication: ANXIETY
     Dosage: 1TSP PER DAY
     Route: 048
     Dates: start: 20040831, end: 20040923
  2. ADDERALL 5 [Concomitant]
     Indication: ATTENTION DEFICIT/HYPERACTIVITY DISORDER
     Dosage: 15MG PER DAY
  3. ABILIFY [Concomitant]
     Dosage: 2.5MG TWICE PER DAY
  4. KLONOPIN [Concomitant]
  5. PERIACTIN [Concomitant]
     Indication: APPETITE DISORDER
     Dosage: 4MG AT NIGHT

REACTIONS (1)
  - AGITATION [None]
